FAERS Safety Report 11637408 (Version 1)
Quarter: 2015Q4

REPORT INFORMATION
  Report Type: Spontaneous
  Country: US (occurrence: US)
  Receive Date: 20151016
  Receipt Date: 20151016
  Transmission Date: 20160304
  Serious: No
  Sender: FDA-Public Use
  Company Number: US-ELI_LILLY_AND_COMPANY-US201510002469

PATIENT
  Sex: Female

DRUGS (2)
  1. BYDUREON [Suspect]
     Active Substance: EXENATIDE
     Indication: PRODUCT USED FOR UNKNOWN INDICATION
     Dosage: UNK, OTHER
     Route: 065
     Dates: start: 201501
  2. HUMALOG [Suspect]
     Active Substance: INSULIN LISPRO
     Indication: DIABETES MELLITUS
     Dosage: 5 U, PRN
     Route: 065
     Dates: start: 201501

REACTIONS (10)
  - Blood glucose increased [Unknown]
  - Dizziness postural [Unknown]
  - Fear [Unknown]
  - Hunger [Unknown]
  - Blood glucose decreased [Unknown]
  - Asthenia [Unknown]
  - Rash papular [Unknown]
  - Drug dose omission [Unknown]
  - Medication error [Unknown]
  - Chills [Unknown]
